FAERS Safety Report 9853178 (Version 1)
Quarter: 2014Q1

REPORT INFORMATION
  Report Type: Report from Study
  Country: US (occurrence: US)
  Receive Date: 20140129
  Receipt Date: 20140129
  Transmission Date: 20141002
  Serious: Yes (Death)
  Sender: FDA-Public Use
  Company Number: US-ROCHE-1295901

PATIENT
  Sex: Male

DRUGS (3)
  1. ALTEPLASE [Suspect]
     Indication: PRODUCT USED FOR UNKNOWN INDICATION
     Route: 065
     Dates: start: 20130728
  2. ALBUTEROL [Concomitant]
     Route: 065
  3. BUMEX [Concomitant]

REACTIONS (1)
  - Death [Fatal]
